FAERS Safety Report 20187730 (Version 1)
Quarter: 2021Q4

REPORT INFORMATION
  Report Type: Report from Study
  Country: IT (occurrence: IT)
  Receive Date: 20211215
  Receipt Date: 20211215
  Transmission Date: 20220303
  Serious: Yes (Hospitalization)
  Sender: FDA-Public Use
  Company Number: None

PATIENT
  Age: 2 Year
  Sex: Female
  Weight: 11 kg

DRUGS (2)
  1. VINCRISTINE SULFATE [Suspect]
     Active Substance: VINCRISTINE SULFATE
     Indication: Rhabdomyosarcoma
     Dosage: 0.8 MG
     Route: 042
     Dates: start: 20210924
  2. IFOSFAMIDE [Suspect]
     Active Substance: IFOSFAMIDE
     Indication: Rhabdomyosarcoma
     Dosage: 1590 MG
     Route: 042
     Dates: start: 20210924

REACTIONS (5)
  - Alopecia [Recovering/Resolving]
  - Leukopenia [Recovering/Resolving]
  - Pyrexia [Recovering/Resolving]
  - Erythropenia [Recovering/Resolving]
  - Anaemia [Recovering/Resolving]

NARRATIVE: CASE EVENT DATE: 20211028
